FAERS Safety Report 6292987-X (Version None)
Quarter: 2009Q3

REPORT INFORMATION
  Report Type: 
  Country: None (occurrence: None)
  Receive Date: 20090729
  Receipt Date: 20090717
  Transmission Date: 20100115
  Serious: Yes (Hospitalization)
  Sender: FDA-Public Use
  Company Number: WAES 0907FRA00057

PATIENT
  Age: 49 Year
  Sex: Female

DRUGS (7)
  1. ZOLINZA [Suspect]
     Indication: NON-SMALL CELL LUNG CANCER
     Dosage: 400 MG/DAILY, PO
     Route: 048
     Dates: start: 20090525, end: 20090603
  2. ZOLINZA [Suspect]
     Indication: NON-SMALL CELL LUNG CANCER
     Dosage: 400 MG/DAILY, PO
     Route: 048
     Dates: start: 20090629, end: 20090708
  3. GEMCITABINE [Suspect]
     Indication: NON-SMALL CELL LUNG CANCER
     Dosage: 1250 MG/M[2]/DAILY IV, 1250 MG/M [2[/DAILY IV
     Route: 042
     Dates: start: 20090527, end: 20090527
  4. GEMCITABINE [Suspect]
     Indication: NON-SMALL CELL LUNG CANCER
     Dosage: 1250 MG/M[2]/DAILY IV, 1250 MG/M [2[/DAILY IV
     Route: 042
     Dates: start: 20090617, end: 20090617
  5. GEMCITABINE [Suspect]
     Indication: NON-SMALL CELL LUNG CANCER
     Dosage: 1250 MG/M[2]/DAILY IV, 1250 MG/M [2[/DAILY IV
     Route: 042
     Dates: start: 20090708, end: 20090708
  6. CISPLATIN [Suspect]
     Indication: NON-SMALL CELL LUNG CANCER
     Dosage: 75 MG/M/M [2]/DAILY IV, 75 MG/M [2]/DAILY IV
     Route: 042
     Dates: start: 20090527, end: 20090527
  7. CISPLATIN [Suspect]
     Indication: NON-SMALL CELL LUNG CANCER
     Dosage: 75 MG/M/M [2]/DAILY IV, 75 MG/M [2]/DAILY IV
     Route: 042
     Dates: start: 20090708, end: 20090708

REACTIONS (2)
  - RASH [None]
  - THROMBOCYTOPENIA [None]
